FAERS Safety Report 19839674 (Version 1)
Quarter: 2021Q3

REPORT INFORMATION
  Report Type: Spontaneous
  Country: US (occurrence: US)
  Receive Date: 20210916
  Receipt Date: 20210916
  Transmission Date: 20211014
  Serious: No
  Sender: FDA-Public Use
  Company Number: US-BSC-202000154

PATIENT
  Age: 70 Year
  Sex: Female
  Weight: 84 kg

DRUGS (1)
  1. VARITHENA [Suspect]
     Active Substance: POLIDOCANOL
     Dosage: OXYGEN CANISTER BATCH NO: 661204??CANISTER SIZE: 18 ML
     Dates: start: 20200601, end: 20200601

REACTIONS (5)
  - Product quality issue [Unknown]
  - Wrong technique in product usage process [Unknown]
  - Expired device used [Unknown]
  - Wrong technique in product usage process [Unknown]
  - Product sterility lacking [Unknown]

NARRATIVE: CASE EVENT DATE: 20200601
